FAERS Safety Report 14148468 (Version 1)
Quarter: 2017Q4

REPORT INFORMATION
  Report Type: Spontaneous
  Country: US (occurrence: US)
  Receive Date: 20171031
  Receipt Date: 20171031
  Transmission Date: 20180321
  Serious: Yes (Disabling)
  Sender: FDA-Public Use
  Company Number: None

PATIENT
  Age: 31 Year
  Sex: Male
  Weight: 64 kg

DRUGS (2)
  1. PAXIL [Concomitant]
     Active Substance: PAROXETINE HYDROCHLORIDE
  2. PROZAC [Suspect]
     Active Substance: FLUOXETINE HYDROCHLORIDE

REACTIONS (4)
  - Emotional disorder [None]
  - Parosmia [None]
  - Sexual dysfunction [None]
  - Anhedonia [None]
